FAERS Safety Report 5775638-X (Version None)
Quarter: 2008Q2

REPORT INFORMATION
  Report Type: 
  Country: None (occurrence: None)
  Receive Date: 20080601
  Receipt Date: 20080318
  Transmission Date: 20081010
  Serious: No
  Sender: FDA-Public Use
  Company Number: US200803004482

PATIENT
  Age: 77 Year
  Sex: Male

DRUGS (6)
  1. BYETTA [Suspect]
     Indication: TYPE 2 DIABETES MELLITUS
     Dosage: 5 UG, 2/D, SUBCUTANEOUS; 10 UG, 2/D, SUBCUTANEOUS
     Route: 058
     Dates: start: 20070401, end: 20070701
  2. BYETTA [Suspect]
     Indication: TYPE 2 DIABETES MELLITUS
     Dosage: 5 UG, 2/D, SUBCUTANEOUS; 10 UG, 2/D, SUBCUTANEOUS
     Route: 058
     Dates: start: 20080312
  3. EXENATIDE (EXENATIDE) [Concomitant]
  4. LANTUS [Concomitant]
  5. AMARYL [Concomitant]
  6. ACTOS [Concomitant]

REACTIONS (7)
  - ABDOMINAL PAIN LOWER [None]
  - DIARRHOEA [None]
  - FALL [None]
  - FLATULENCE [None]
  - MUSCULOSKELETAL CHEST PAIN [None]
  - VERTEBRAL INJURY [None]
  - WEIGHT INCREASED [None]
